FAERS Safety Report 5577654-X (Version None)
Quarter: 2007Q4

REPORT INFORMATION
  Report Type: 
  Country: None (occurrence: None)
  Receive Date: 20071231
  Receipt Date: 20071221
  Transmission Date: 20080405
  Serious: Yes (Other)
  Sender: FDA-Public Use
  Company Number: PHHO2007FR20959

PATIENT
  Age: 32 Year
  Sex: Male
  Weight: 82 kg

DRUGS (2)
  1. TELBIVUDINE [Suspect]
     Indication: HEPATITIS B
     Dosage: 600 MG,
     Route: 048
     Dates: start: 20070531
  2. PEGASYS [Suspect]
     Indication: HEPATITIS B
     Dosage: 180 UG,
     Route: 058
     Dates: start: 20070531

REACTIONS (5)
  - BLOOD CREATINE PHOSPHOKINASE INCREASED [None]
  - MITOCHONDRIAL MYOPATHY [None]
  - MUSCLE NECROSIS [None]
  - MYALGIA [None]
  - MYOPATHY [None]
